FAERS Safety Report 9729031 (Version 3)
Quarter: 2014Q1

REPORT INFORMATION
  Report Type: Spontaneous
  Country: GB (occurrence: GB)
  Receive Date: 20131204
  Receipt Date: 20140116
  Transmission Date: 20141002
  Serious: Yes (Hospitalization, Other)
  Sender: FDA-Public Use
  Company Number: GB-PFIZER INC-2013346234

PATIENT
  Age: 32 Year
  Sex: Female

DRUGS (11)
  1. HALOPERIDOL [Suspect]
     Indication: SCHIZOPHRENIA, PARANOID TYPE
     Dosage: 5 MG, 2X/DAY
     Route: 048
     Dates: start: 20111229, end: 20120104
  2. HALOPERIDOL [Suspect]
     Dosage: 5 MG, 3X/DAY
     Route: 048
     Dates: start: 20120105, end: 20120109
  3. CHLORPROMAZINE [Suspect]
     Indication: SCHIZOPHRENIA, PARANOID TYPE
     Dosage: 25 MG, 3X/DAY
     Dates: start: 20111215, end: 20111219
  4. CHLORPROMAZINE [Suspect]
     Dosage: 200 MG, 3X/DAY
     Dates: start: 20120109, end: 20120114
  5. RISPERDAL [Suspect]
     Indication: SCHIZOPHRENIA, PARANOID TYPE
     Dosage: 3 MG, IN THE MORNING AND 4 MG AT NIGHT
     Route: 048
     Dates: start: 20120221, end: 20120307
  6. RISPERDAL [Suspect]
     Dosage: 3 MG, 2X/DAY
     Route: 048
     Dates: start: 20120308, end: 20120609
  7. RISPERDAL [Suspect]
     Dosage: 6 MG, IN THE MORNING
     Route: 048
     Dates: start: 20120609, end: 20120821
  8. ZOPICLONE [Suspect]
     Indication: INSOMNIA
     Dosage: 15 MG, 1X/DAY AT NIGHT
     Route: 048
     Dates: start: 20120210, end: 20120718
  9. ZOPICLONE [Suspect]
     Indication: SLEEP DISORDER
  10. SENNA [Concomitant]
     Dosage: 15 MG, UNK
     Dates: start: 20120116
  11. PROMETHAZINE [Concomitant]
     Dosage: 25 MG, 2X/DAY
     Dates: start: 20111216

REACTIONS (2)
  - Blood iron decreased [Unknown]
  - Schizoaffective disorder [Unknown]
